FAERS Safety Report 5723371-2 (Version None)
Quarter: 2008Q2

REPORT INFORMATION
  Report Type: 
  Country: None (occurrence: None)
  Receive Date: 20080429
  Receipt Date: 20080429
  Transmission Date: 20081010
  Serious: Yes (Life-Threatening)
  Sender: FDA-Public Use
  Company Number: None

PATIENT
  Age: 38 Year
  Sex: Male
  Weight: 83.9154 kg

DRUGS (1)
  1. PROAIR HFA [Suspect]
     Indication: ASTHMA
     Dosage: 90 MCG AS NEEDED INHAL
     Route: 055
     Dates: start: 20080304, end: 20080427

REACTIONS (2)
  - DEVICE INEFFECTIVE [None]
  - PHARMACEUTICAL PRODUCT COMPLAINT [None]
